FAERS Safety Report 4721591-7 (Version None)
Quarter: 2005Q3

REPORT INFORMATION
  Report Type: 
  Country: None (occurrence: None)
  Receive Date: 20050721
  Receipt Date: 20041216
  Transmission Date: 20060218
  Serious: Yes (Hospitalization)
  Sender: FDA-Public Use
  Company Number: US-BRISTOL-MYERS SQUIBB COMPANY-12797510

PATIENT
  Age: 90 Year
  Sex: Female

DRUGS (4)
  1. COUMADIN [Suspect]
     Indication: ATRIAL FIBRILLATION
     Dosage: DOSE UNK, BUT KEPT AT APPROX 3.5 (UNITS NOT GIVEN); COMMENCED YEARS AGO.
     Route: 048
  2. LEXAPRO [Suspect]
     Indication: DEPRESSION
     Dosage: AUG2004 TO 22NOV2004:10 MG QD, 23NOV04-27NOV04:20 MG QD
     Route: 048
     Dates: start: 20040801, end: 20041127
  3. AMBIEN [Concomitant]
  4. MULTI-VITAMIN [Concomitant]

REACTIONS (2)
  - ABDOMINAL PAIN [None]
  - GASTROINTESTINAL HAEMORRHAGE [None]
